FAERS Safety Report 25815954 (Version 1)
Quarter: 2025Q3

REPORT INFORMATION
  Report Type: Spontaneous
  Country: EU (occurrence: EU)
  Receive Date: 20250918
  Receipt Date: 20250918
  Transmission Date: 20251020
  Serious: Yes (Life-Threatening)
  Sender: BAUSCH AND LOMB
  Company Number: None

PATIENT
  Age: 66 Year
  Sex: Male

DRUGS (8)
  1. DEXAMETHASONE [Suspect]
     Active Substance: DEXAMETHASONE
     Indication: COVID-19
     Route: 042
  2. OLUMIANT [Suspect]
     Active Substance: BARICITINIB
     Indication: COVID-19
     Route: 048
  3. CEFTRIAXONE SODIUM [Concomitant]
     Active Substance: CEFTRIAXONE SODIUM
     Indication: COVID-19
     Dosage: POWDER FOR SOLUTION FOR INJECTION OR INFUSION
  4. NEDAL [DAPAGLIFLOZIN] [Concomitant]
     Indication: Hypertension
     Route: 048
  5. ENOXAPARIN SODIUM [Concomitant]
     Active Substance: ENOXAPARIN SODIUM
     Indication: Product used for unknown indication
     Dosage: 8000 IU (80 MG) /0.8 ML
     Route: 058
  6. AMLODIPINE BESYLATE\PERINDOPRIL ARGININE [Concomitant]
     Active Substance: AMLODIPINE BESYLATE\PERINDOPRIL ARGININE
     Indication: Hypertension
     Dosage: STRENGTH: 5 MG + 5 MG
     Route: 048
  7. OMEPRAZOLE [Concomitant]
     Active Substance: OMEPRAZOLE
     Indication: Product used for unknown indication
     Route: 048
  8. NOVORAPID [Concomitant]
     Active Substance: INSULIN ASPART
     Indication: Product used for unknown indication
     Route: 065

REACTIONS (3)
  - Immunodeficiency [Unknown]
  - Pneumonia bacterial [Unknown]
  - Hyperglycaemia [Unknown]
